FAERS Safety Report 7545268-8 (Version None)
Quarter: 2011Q2

REPORT INFORMATION
  Report Type: 
  Country: None (occurrence: None)
  Receive Date: 20110614
  Receipt Date: 20110606
  Transmission Date: 20111010
  Serious: Yes (Other)
  Sender: FDA-Public Use
  Company Number: US-JNJFOC-20110603986

PATIENT
  Sex: Female
  Weight: 99.79 kg

DRUGS (16)
  1. FENTANYL-100 [Suspect]
     Indication: MULTIPLE SCLEROSIS
     Route: 062
     Dates: start: 20110101, end: 20110606
  2. UNKNOWN MEDICATION [Concomitant]
     Indication: STRESS
     Route: 048
  3. FENTANYL-100 [Suspect]
     Indication: MULTIPLE SCLEROSIS
     Route: 062
     Dates: start: 20100101, end: 20110101
  4. FENTANYL-100 [Suspect]
     Indication: BACK PAIN
     Route: 062
     Dates: start: 20100101
  5. FENTANYL-100 [Suspect]
     Route: 062
     Dates: start: 20100101
  6. FENTANYL-100 [Suspect]
     Route: 062
     Dates: start: 20100101
  7. PAXIL [Concomitant]
     Indication: DEPRESSION
     Route: 048
     Dates: start: 19960101
  8. FENTANYL-100 [Suspect]
     Route: 062
     Dates: start: 20100101
  9. FENTANYL-100 [Suspect]
     Route: 062
     Dates: start: 20100101
  10. FENTANYL-100 [Suspect]
     Route: 062
     Dates: start: 20100101, end: 20110101
  11. FENTANYL-100 [Suspect]
     Route: 062
     Dates: start: 20110101
  12. FENTANYL-100 [Suspect]
     Indication: BACK PAIN
     Route: 062
     Dates: start: 20110101, end: 20110606
  13. UNKNOWN MEDICATION [Concomitant]
     Indication: MOOD SWINGS
     Route: 048
  14. TRAZODONE HCL [Concomitant]
     Indication: SLEEP DISORDER
     Route: 048
  15. FENTANYL-100 [Suspect]
     Route: 062
     Dates: start: 20100101
  16. FENTANYL-100 [Suspect]
     Route: 062
     Dates: start: 20110101

REACTIONS (5)
  - JOINT INJURY [None]
  - MENISCUS LESION [None]
  - APPLICATION SITE SCAB [None]
  - APPLICATION SITE BURN [None]
  - BACK PAIN [None]
